FAERS Safety Report 14678245 (Version 1)
Quarter: 2018Q1

REPORT INFORMATION
  Report Type: Spontaneous
  Country: US (occurrence: US)
  Receive Date: 20180326
  Receipt Date: 20180326
  Transmission Date: 20180509
  Serious: No
  Sender: FDA-Public Use
  Company Number: PHEH2018US011433

PATIENT
  Sex: Male

DRUGS (1)
  1. PROMACTA [Suspect]
     Active Substance: ELTROMBOPAG OLAMINE
     Indication: MALIGNANT NEOPLASM OF CHOROID
     Dosage: UNK
     Route: 065
     Dates: start: 20170607

REACTIONS (2)
  - Ear disorder [Unknown]
  - Product use in unapproved indication [Unknown]
